FAERS Safety Report 23490916 (Version 1)
Quarter: 2024Q1

REPORT INFORMATION
  Report Type: Spontaneous
  Country: US (occurrence: None)
  Receive Date: 20240206
  Receipt Date: 20240206
  Transmission Date: 20240410
  Serious: No
  Sender: FDA-Public Use
  Company Number: US-ROCHE-3395254

PATIENT
  Age: 24 Year
  Sex: Female
  Weight: 56.75 kg

DRUGS (6)
  1. NUTROPIN AQ [Suspect]
     Active Substance: SOMATROPIN
     Indication: Increased appetite
     Route: 065
     Dates: start: 2022
  2. NUTROPIN AQ [Suspect]
     Active Substance: SOMATROPIN
  3. DESMOPRESSIN [Concomitant]
     Active Substance: DESMOPRESSIN
     Indication: Diabetes insipidus
  4. SYNTHROID [Concomitant]
     Active Substance: LEVOTHYROXINE SODIUM
  5. HYDROCORTISONE [Concomitant]
     Active Substance: HYDROCORTISONE
  6. LIOTHYRONINE [Concomitant]
     Active Substance: LIOTHYRONINE

REACTIONS (6)
  - Off label use [Unknown]
  - Product dose omission issue [Unknown]
  - Product quality issue [Unknown]
  - Drug delivery system malfunction [Unknown]
  - Wrong technique in device usage process [Unknown]
  - Energy increased [Unknown]

NARRATIVE: CASE EVENT DATE: 20220101
